FAERS Safety Report 6666271-6 (Version None)
Quarter: 2010Q1

REPORT INFORMATION
  Report Type: 
  Country: None (occurrence: None)
  Receive Date: 20100330
  Receipt Date: 20100323
  Transmission Date: 20100710
  Serious: Yes (Hospitalization)
  Sender: FDA-Public Use
  Company Number: 2009-196599-NL

PATIENT
  Age: 44 Year
  Sex: Female
  Weight: 54 kg

DRUGS (5)
  1. NUVARING [Suspect]
     Indication: CONTRACEPTION
     Dosage: QM; VAG
     Route: 067
     Dates: start: 20060121, end: 20060418
  2. NUVARING [Suspect]
     Indication: METRORRHAGIA
     Dosage: QM; VAG
     Route: 067
     Dates: start: 20060121, end: 20060418
  3. ADVIL [Concomitant]
  4. MORTRIN [Concomitant]
  5. TYLENOL-500 [Concomitant]

REACTIONS (7)
  - ABDOMINAL PAIN UPPER [None]
  - DRUG DOSE OMISSION [None]
  - INFLUENZA [None]
  - PLEURITIC PAIN [None]
  - PULMONARY EMBOLISM [None]
  - PULMONARY INFARCTION [None]
  - THYROID NEOPLASM [None]
